FAERS Safety Report 9748801 (Version 2)
Quarter: 2013Q4

REPORT INFORMATION
  Report Type: Spontaneous
  Country: US (occurrence: US)
  Receive Date: 20131212
  Receipt Date: 20131212
  Transmission Date: 20140711
  Serious: Yes (Other)
  Sender: FDA-Public Use
  Company Number: US-INCYTE CORPORATION-2013IN001504

PATIENT
  Age: 62 Year
  Sex: Male
  Weight: 90.9 kg

DRUGS (10)
  1. JAKAFI [Suspect]
     Indication: MYELOFIBROSIS
     Dosage: 20 MG, BID
     Route: 048
     Dates: start: 20130531, end: 2013
  2. JAKAFI [Suspect]
     Indication: ESSENTIAL THROMBOCYTHAEMIA
     Dosage: DOSE TAPERED
     Route: 048
     Dates: start: 2013, end: 2013
  3. LEVOTHYROXINE [Concomitant]
  4. LOSARTAN [Concomitant]
  5. FENOFIBRATE [Concomitant]
  6. ATORVASTATIN [Concomitant]
  7. DILTIAZEM [Concomitant]
  8. ASPIRIN [Concomitant]
     Dosage: UNK
  9. ADVIL [Concomitant]
  10. CALCIUM SUPPLEMENT [Concomitant]

REACTIONS (2)
  - Haemoglobin decreased [Recovering/Resolving]
  - Haematocrit decreased [Recovering/Resolving]
